FAERS Safety Report 6304605-2 (Version None)
Quarter: 2009Q3

REPORT INFORMATION
  Report Type: 
  Country: None (occurrence: None)
  Receive Date: 20090811
  Receipt Date: 20090805
  Transmission Date: 20100115
  Serious: Yes (Other)
  Sender: FDA-Public Use
  Company Number: AU-JNJFOC-20090802045

PATIENT
  Age: 23 Year
  Sex: Female

DRUGS (4)
  1. TOPAMAX [Suspect]
     Route: 048
  2. TOPAMAX [Suspect]
     Indication: DRUG USE FOR UNKNOWN INDICATION
     Route: 048
  3. SEROQUEL [Concomitant]
     Route: 065
  4. VALDOXAN (AGOMELATINE) [Concomitant]
     Indication: SLEEP DISORDER THERAPY
     Route: 065

REACTIONS (1)
  - TACHYCARDIA [None]
